FAERS Safety Report 5467450-6 (Version None)
Quarter: 2007Q3

REPORT INFORMATION
  Report Type: 
  Country: None (occurrence: None)
  Receive Date: 20070925
  Receipt Date: 20070919
  Transmission Date: 20080115
  Serious: Yes (Life-Threatening, Hospitalization)
  Sender: FDA-Public Use
  Company Number: TW-SHR-TW-2007-035464

PATIENT
  Age: 71 Year
  Sex: Male
  Weight: 75 kg

DRUGS (1)
  1. ULTRAVIST 370 [Suspect]
     Dosage: UNK, 1 DOSE
     Dates: start: 20070905, end: 20070905

REACTIONS (2)
  - CONVULSION [None]
  - CYANOSIS [None]
